FAERS Safety Report 8624385-5 (Version None)
Quarter: 2012Q3

REPORT INFORMATION
  Report Type: 
  Country: None (occurrence: None)
  Receive Date: 20120827
  Receipt Date: 20120822
  Transmission Date: 20120928
  Serious: Yes (Hospitalization)
  Sender: FDA-Public Use
  Company Number: IT-PFIZER INC-2012206884

PATIENT
  Age: 64 Year
  Sex: Male

DRUGS (1)
  1. CISPLATIN [Suspect]
     Indication: HETEROPLASIA
     Dosage: 1 DOSAGE UNIT, TOTAL DOSE
     Route: 042
     Dates: start: 20120616, end: 20120616

REACTIONS (5)
  - CHEST PAIN [None]
  - VOMITING [None]
  - ASTHENIA [None]
  - MALAISE [None]
  - DECREASED APPETITE [None]
